FAERS Safety Report 7735436-4 (Version None)
Quarter: 2011Q3

REPORT INFORMATION
  Report Type: 
  Country: None (occurrence: None)
  Receive Date: 20110907
  Receipt Date: 20110829
  Transmission Date: 20111222
  Serious: Yes (Other)
  Sender: FDA-Public Use
  Company Number: JP-BAXTER-2011BH027949

PATIENT
  Age: 11 Year
  Sex: Male

DRUGS (1)
  1. FEIBA [Suspect]
     Indication: HAEMOPHILIA B WITH ANTI FACTOR IX
     Route: 042
     Dates: start: 20110801

REACTIONS (1)
  - FACTOR IX INHIBITION [None]
